FAERS Safety Report 19699996 (Version 1)
Quarter: 2021Q3

REPORT INFORMATION
  Report Type: Spontaneous
  Country: JP (occurrence: JP)
  Receive Date: 20210813
  Receipt Date: 20210813
  Transmission Date: 20211014
  Serious: Yes (Other)
  Sender: FDA-Public Use
  Company Number: JP-PFIZER INC-202101000008

PATIENT

DRUGS (2)
  1. FOLIAMIN [FOLIC ACID] [Suspect]
     Active Substance: FOLIC ACID
     Dosage: 5 MG, WEEKLY (ONE TABLET ON MONDAY)
  2. RHEUMATREX [Suspect]
     Active Substance: METHOTREXATE SODIUM
     Indication: RHEUMATIC DISORDER
     Dosage: 4 MG, WEEKLY (ONE CAPSULE 2MG EVERY 24 HOURS IN THE MORNING ON FRIDAY AND SATURDAY EVERY WEEK)
     Route: 048

REACTIONS (1)
  - Cholelithiasis [Unknown]
